FAERS Safety Report 6419682-8 (Version None)
Quarter: 2009Q4

REPORT INFORMATION
  Report Type: 
  Country: None (occurrence: None)
  Receive Date: 20091029
  Receipt Date: 20091023
  Transmission Date: 20100525
  Serious: Yes (Hospitalization)
  Sender: FDA-Public Use
  Company Number: B0535560A

PATIENT
  Sex: Female
  Weight: 59 kg

DRUGS (5)
  1. LAPATINIB [Suspect]
     Indication: BREAST CANCER
     Dosage: 1500MG PER DAY
     Route: 048
     Dates: start: 20080306
  2. PACLITAXEL [Suspect]
     Indication: BREAST CANCER
     Route: 042
     Dates: start: 20080415
  3. FLUOROURACIL [Suspect]
     Indication: BREAST CANCER
     Dates: start: 20080820
  4. EPIRUBICIN [Suspect]
     Indication: BREAST CANCER
     Dates: start: 20080820
  5. CYCLOPHOSPHAMIDE [Suspect]
     Indication: BREAST CANCER
     Dates: start: 20080820

REACTIONS (5)
  - BREAST PAIN [None]
  - ERYTHEMA [None]
  - FEELING HOT [None]
  - LYMPHOEDEMA [None]
  - NEUTROPENIA [None]
